FAERS Safety Report 17081835 (Version 1)
Quarter: 2019Q4

REPORT INFORMATION
  Report Type: Spontaneous
  Country: US (occurrence: US)
  Receive Date: 20191029
  Receipt Date: 20191029
  Transmission Date: 20200122
  Serious: Yes (Hospitalization)
  Sender: FDA-Public Use
  Company Number: None

PATIENT
  Age: 47 Year
  Sex: Male
  Weight: 95.25 kg

DRUGS (9)
  1. TOUJEO [Concomitant]
     Active Substance: INSULIN GLARGINE
  2. METFORMIN ER [Concomitant]
     Active Substance: METFORMIN HYDROCHLORIDE
  3. SILDENENAFIL [Concomitant]
  4. COLLAGEN [Concomitant]
     Active Substance: COLLAGEN
  5. FREESTYLE LIBRA [Concomitant]
  6. GABAPENTIN. [Concomitant]
     Active Substance: GABAPENTIN
  7. ATORVASTATIN [Concomitant]
     Active Substance: ATORVASTATIN
  8. VITAMIN B12 [Concomitant]
     Active Substance: CYANOCOBALAMIN
  9. FARXIGA [Suspect]
     Active Substance: DAPAGLIFLOZIN PROPANEDIOL
     Indication: TYPE 2 DIABETES MELLITUS
     Dosage: ?          QUANTITY:1 TABLET;OTHER FREQUENCY:DAILY (IN AM);?
     Route: 048
     Dates: start: 20190920, end: 20191005

REACTIONS (3)
  - Ill-defined disorder [None]
  - Headache [None]
  - Thrombosis [None]

NARRATIVE: CASE EVENT DATE: 20191002
